FAERS Safety Report 7647317-5 (Version None)
Quarter: 2011Q3

REPORT INFORMATION
  Report Type: 
  Country: None (occurrence: None)
  Receive Date: 20110801
  Receipt Date: 20110726
  Transmission Date: 20111222
  Serious: Yes (Death, Life-Threatening, Hospitalization, Other)
  Sender: FDA-Public Use
  Company Number: US-CELGENEUS-163-21880-11022860

PATIENT
  Sex: Female

DRUGS (10)
  1. LOVAZA [Concomitant]
     Dosage: 1 GRAM
     Route: 048
     Dates: start: 20100828
  2. PRESERVISION AREDS [Concomitant]
     Dosage: 4 CAPSULE
     Route: 048
     Dates: start: 20100828
  3. REVLIMID [Suspect]
     Indication: MULTIPLE MYELOMA
     Dosage: 10 MILLIGRAM
     Route: 048
     Dates: start: 20100831, end: 20110309
  4. LEVOTHYROXINE SODIUM [Concomitant]
     Dosage: .025 MILLIGRAM
     Route: 065
     Dates: start: 20100828
  5. XIBROM [Concomitant]
     Route: 065
     Dates: start: 20100828
  6. VITAMIN D [Concomitant]
     Dosage: 1
     Route: 048
     Dates: start: 20100828
  7. MOVE FREE [Concomitant]
     Dosage: 2 TABLET
     Route: 048
     Dates: start: 20100828
  8. LIPITOR [Concomitant]
     Dosage: 50 MILLIGRAM
     Route: 048
     Dates: start: 20100828
  9. CALTRATE 600 + D [Concomitant]
     Dosage: 1 TABLET
     Route: 048
     Dates: start: 20100828
  10. TIMOLOL MALEATE [Concomitant]
     Dosage: 1 DROPS
     Route: 047
     Dates: start: 20100828

REACTIONS (4)
  - DEATH [None]
  - PANCYTOPENIA [None]
  - FATIGUE [None]
  - PLATELET COUNT DECREASED [None]
